FAERS Safety Report 22289521 (Version 1)
Quarter: 2023Q2

REPORT INFORMATION
  Report Type: Spontaneous
  Country: IT (occurrence: IT)
  Receive Date: 20230505
  Receipt Date: 20230505
  Transmission Date: 20230722
  Serious: Yes (Death, Life-Threatening, Other)
  Sender: FDA-Public Use
  Company Number: None

PATIENT
  Age: 64 Year
  Sex: Male

DRUGS (1)
  1. AUBAGIO [Suspect]
     Active Substance: TERIFLUNOMIDE
     Indication: Secondary progressive multiple sclerosis
     Dosage: 14 MG, QD
     Route: 048
     Dates: start: 20171019

REACTIONS (1)
  - Hepatic neoplasm [Fatal]

NARRATIVE: CASE EVENT DATE: 20220622
